FAERS Safety Report 24426770 (Version 2)
Quarter: 2024Q4

REPORT INFORMATION
  Report Type: Spontaneous
  Country: IT (occurrence: IT)
  Receive Date: 20241011
  Receipt Date: 20241021
  Transmission Date: 20250115
  Serious: Yes (Death, Life-Threatening, Other)
  Sender: MACLEODS
  Company Number: IT-MACLEODS PHARMA-MAC2024049749

PATIENT

DRUGS (3)
  1. TRAMADOL [Suspect]
     Active Substance: TRAMADOL
     Indication: Product used for unknown indication
     Route: 065
  2. MIRTAZAPINE [Suspect]
     Active Substance: MIRTAZAPINE
     Indication: Product used for unknown indication
     Route: 065
  3. DIAZEPAM [Suspect]
     Active Substance: DIAZEPAM
     Indication: Product used for unknown indication
     Route: 065

REACTIONS (6)
  - Toxicity to various agents [Fatal]
  - Brain oedema [Fatal]
  - Pulmonary oedema [Fatal]
  - Visceral congestion [Fatal]
  - Overdose [Fatal]
  - Drug interaction [Fatal]

NARRATIVE: CASE EVENT DATE: 20200101
